FAERS Safety Report 8338381-9 (Version None)
Quarter: 2012Q2

REPORT INFORMATION
  Report Type: 
  Country: None (occurrence: None)
  Receive Date: 20120504
  Receipt Date: 20120502
  Transmission Date: 20120825
  Serious: Yes (Hospitalization)
  Sender: FDA-Public Use
  Company Number: CN-ROCHE-1065117

PATIENT
  Sex: Female

DRUGS (1)
  1. HERCEPTIN [Suspect]
     Indication: BREAST CANCER

REACTIONS (3)
  - EPIDERMAL GROWTH FACTOR RECEPTOR DECREASED [None]
  - BREAST CANCER METASTATIC [None]
  - BREAST CANCER RECURRENT [None]
